FAERS Safety Report 12356688 (Version 6)
Quarter: 2020Q2

REPORT INFORMATION
  Report Type: Spontaneous
  Country: US (occurrence: US)
  Receive Date: 20160511
  Receipt Date: 20200630
  Transmission Date: 20200713
  Serious: Yes (Hospitalization)
  Sender: FDA-Public Use
  Company Number: US-SA-2015SA128971

PATIENT

DRUGS (11)
  1. NOVOLOG [Concomitant]
     Active Substance: INSULIN ASPART
     Route: 065
  2. CALCIUM [Concomitant]
     Active Substance: CALCIUM
     Indication: OSTEOPOROSIS
     Dosage: 1200 MG,UNK
     Route: 065
     Dates: start: 2007
  3. GLUCOSAMINE [Concomitant]
     Active Substance: GLUCOSAMINE
     Dosage: 1500 MG,UNK
     Route: 065
  4. ZETIA [Concomitant]
     Active Substance: EZETIMIBE
     Indication: BLOOD CHOLESTEROL INCREASED
     Dosage: 10 MG,UNK
     Route: 065
     Dates: start: 1995
  5. MIACALCIN [Concomitant]
     Active Substance: CALCITONIN SALMON
     Dosage: MIACALCIN SALMON
     Route: 065
  6. LANTUS [Suspect]
     Active Substance: INSULIN GLARGINE
     Indication: BLOOD GLUCOSE INCREASED
     Dosage: 9 IU, QD
     Route: 065
     Dates: start: 2000
  7. HUMALOG [Concomitant]
     Active Substance: INSULIN LISPRO
     Dosage: SLIDING SCALE
     Route: 065
  8. ENALAPRIL [Concomitant]
     Active Substance: ENALAPRIL
     Indication: PROTEIN URINE PRESENT
     Dosage: 5 MG,UNK
     Route: 065
     Dates: start: 1985
  9. VITAMIN D2 [Concomitant]
     Active Substance: ERGOCALCIFEROL
     Dosage: 1.25 MG,UNK
     Route: 065
     Dates: start: 2012
  10. SYNTHROID [Concomitant]
     Active Substance: LEVOTHYROXINE SODIUM
     Indication: HYPOTHYROIDISM
     Dosage: 100 UG,UNK
     Route: 065
     Dates: start: 1965
  11. LANTUS [Suspect]
     Active Substance: INSULIN GLARGINE
     Indication: TYPE 1 DIABETES MELLITUS
     Dosage: 10 IU AT NIGHT
     Route: 065

REACTIONS (4)
  - Blood glucose increased [Unknown]
  - Unevaluable event [Unknown]
  - Drug ineffective [Unknown]
  - Blood glucose decreased [Unknown]
